FAERS Safety Report 16824253 (Version 2)
Quarter: 2020Q1

REPORT INFORMATION
  Report Type: Other
  Country: CA (occurrence: CA)
  Receive Date: 20190918
  Receipt Date: 20200217
  Transmission Date: 20200409
  Serious: Yes (Other)
  Sender: FDA-Public Use
  Company Number: CA-BECTON DICKINSON-2019BDN00326

PATIENT

DRUGS (10)
  1. CHLORHEXIDINE GLUCONATE ORAL RINSE [Suspect]
     Active Substance: CHLORHEXIDINE GLUCONATE
     Route: 064
  2. DICLECTIN [Suspect]
     Active Substance: DOXYLAMINE SUCCINATE\PYRIDOXINE HYDROCHLORIDE
     Route: 064
  3. METFORMIN [Suspect]
     Active Substance: METFORMIN HYDROCHLORIDE
     Route: 064
  4. SILDENAFIL. [Suspect]
     Active Substance: SILDENAFIL
     Dosage: UNK
  5. ACETYLSALICYLIC ACID [Suspect]
     Active Substance: ASPIRIN
     Route: 064
  6. INSULIN [Suspect]
     Active Substance: INSULIN NOS
     Route: 064
  7. DEXPANTHENOL/ERGOCALCIFEROL/FOLIC ACID/NICOTINAMIDE/RIBOFLAVIN/THIAMIN [Suspect]
     Active Substance: VITAMINS
     Route: 064
  8. SILDENAFIL. [Suspect]
     Active Substance: SILDENAFIL
     Route: 064
  9. METHYLDOPA. [Suspect]
     Active Substance: METHYLDOPA
     Dosage: UNK
     Route: 064
  10. NIFEDIPINE. [Suspect]
     Active Substance: NIFEDIPINE

REACTIONS (2)
  - Foetal exposure during pregnancy [Unknown]
  - Premature baby [Unknown]
